FAERS Safety Report 6312396-4 (Version None)
Quarter: 2009Q3

REPORT INFORMATION
  Report Type: 
  Country: None (occurrence: None)
  Receive Date: 20090817
  Receipt Date: 20090810
  Transmission Date: 20100115
  Serious: Yes (Other)
  Sender: FDA-Public Use
  Company Number: NZ-JNJCH-2009021661

PATIENT
  Age: 15 Year
  Sex: Male

DRUGS (1)
  1. LISTERINE WHITENING PRE-BRUSH RINSE [Suspect]
     Indication: DRUG USE FOR UNKNOWN INDICATION
     Dosage: TEXT:AS INSTRUCTED FOR THREE DAYS
     Route: 048
     Dates: start: 20090601, end: 20090601

REACTIONS (2)
  - APPLICATION SITE BURN [None]
  - GLOSSODYNIA [None]
